FAERS Safety Report 6569593-2 (Version None)
Quarter: 2010Q1

REPORT INFORMATION
  Report Type: 
  Country: None (occurrence: None)
  Receive Date: 20100204
  Receipt Date: 20100124
  Transmission Date: 20100710
  Serious: No
  Sender: FDA-Public Use
  Company Number: US-MYLANLABS-2010S1001335

PATIENT
  Age: 60 Year
  Sex: Female

DRUGS (7)
  1. CLONAZEPAM [Suspect]
     Indication: NEURALGIA
     Route: 048
     Dates: start: 20100116, end: 20100117
  2. CLIMARA [Concomitant]
     Indication: HORMONE REPLACEMENT THERAPY
  3. TOPAMAX [Concomitant]
     Indication: MIGRAINE
  4. ASPIRIN [Concomitant]
     Indication: ATRIAL FIBRILLATION
  5. NEXIUM [Concomitant]
     Indication: GASTROOESOPHAGEAL REFLUX DISEASE
  6. DIGOXIN [Concomitant]
     Indication: ATRIAL FIBRILLATION
  7. COUMADIN [Concomitant]
     Indication: ATRIAL FIBRILLATION

REACTIONS (4)
  - AGITATION [None]
  - ANGIOEDEMA [None]
  - CHEST DISCOMFORT [None]
  - PALPITATIONS [None]
